FAERS Safety Report 14258823 (Version 1)
Quarter: 2017Q4

REPORT INFORMATION
  Report Type: Spontaneous
  Country: US (occurrence: US)
  Receive Date: 20171206
  Receipt Date: 20171206
  Transmission Date: 20180321
  Serious: Yes (Hospitalization)
  Sender: FDA-Public Use
  Company Number: None

PATIENT
  Age: 68 Year
  Sex: Female
  Weight: 59.4 kg

DRUGS (1)
  1. COLCHICINE. [Suspect]
     Active Substance: COLCHICINE
     Indication: POLYARTERITIS NODOSA
     Route: 048
     Dates: start: 20171016, end: 20171030

REACTIONS (4)
  - Blood creatine phosphokinase increased [None]
  - Asthenia [None]
  - Myopathy [None]
  - Therapy cessation [None]

NARRATIVE: CASE EVENT DATE: 20171028
